FAERS Safety Report 6164005-5 (Version None)
Quarter: 2009Q2

REPORT INFORMATION
  Report Type: 
  Country: None (occurrence: None)
  Receive Date: 20090422
  Receipt Date: 20090409
  Transmission Date: 20091009
  Serious: Yes (Hospitalization)
  Sender: FDA-Public Use
  Company Number: FR-SANOFI-SYNTHELABO-A01200903943

PATIENT
  Sex: Female

DRUGS (3)
  1. CARDENSIEL [Concomitant]
     Indication: CARDIAC FAILURE
     Dosage: UNK
     Route: 065
  2. ACTONEL [Concomitant]
     Indication: OSTEOPOROSIS
     Dosage: UNK
     Route: 065
  3. PLAVIX [Suspect]
     Indication: MYOCARDIAL INFARCTION
     Dosage: 75 MG
     Route: 048
     Dates: start: 20041126

REACTIONS (8)
  - ASTHENIA [None]
  - DEHYDRATION [None]
  - FOLATE DEFICIENCY [None]
  - HYPONATRAEMIA [None]
  - HYPOTENSION [None]
  - METRORRHAGIA [None]
  - NORMOCHROMIC NORMOCYTIC ANAEMIA [None]
  - WEIGHT DECREASED [None]
